FAERS Safety Report 6539949-2 (Version None)
Quarter: 2010Q1

REPORT INFORMATION
  Report Type: 
  Country: None (occurrence: None)
  Receive Date: 20100115
  Receipt Date: 20100107
  Transmission Date: 20100710
  Serious: Yes (Death, Hospitalization)
  Sender: FDA-Public Use
  Company Number: ES-ELI_LILLY_AND_COMPANY-ES201001001121

PATIENT
  Age: 85 Year
  Sex: Female

DRUGS (1)
  1. FORTEO [Suspect]
     Indication: FALL
     Dosage: 20 UG, UNKNOWN
     Route: 048
     Dates: start: 20091012, end: 20091201

REACTIONS (5)
  - INCORRECT ROUTE OF DRUG ADMINISTRATION [None]
  - INTENTIONAL DRUG MISUSE [None]
  - OFF LABEL USE [None]
  - PULMONARY EMBOLISM [None]
  - THROMBOSIS [None]
